FAERS Safety Report 10066321 (Version 1)
Quarter: 2014Q2

REPORT INFORMATION
  Report Type: Spontaneous
  Country: US (occurrence: US)
  Receive Date: 20140408
  Receipt Date: 20140408
  Transmission Date: 20141212
  Serious: No
  Sender: FDA-Public Use
  Company Number: US-PFIZER INC-2014092846

PATIENT
  Age: 54 Year
  Sex: Female

DRUGS (2)
  1. LIPITOR [Suspect]
     Indication: BLOOD CHOLESTEROL
     Dosage: UNK
     Dates: start: 20131203
  2. SYNTHROID [Concomitant]
     Dosage: UNK

REACTIONS (3)
  - Pain [Unknown]
  - Abdominal pain upper [Unknown]
  - Pyrexia [Unknown]
